FAERS Safety Report 5222562-7 (Version None)
Quarter: 2007Q1

REPORT INFORMATION
  Report Type: 
  Country: None (occurrence: None)
  Receive Date: 20070129
  Receipt Date: 20070115
  Transmission Date: 20070707
  Serious: Yes (Hospitalization, Other)
  Sender: FDA-Public Use
  Company Number: US-ELI_LILLY_AND_COMPANY-US200611002172

PATIENT
  Age: 48 Year
  Sex: Female
  Weight: 54.421 kg

DRUGS (8)
  1. CYMBALTA [Suspect]
     Indication: DEPRESSION
     Dosage: 60 MG, UNK
     Dates: start: 20061004, end: 20061006
  2. MORPHINE [Concomitant]
     Dosage: 4 MG, EVERY 4 HRS
     Route: 042
     Dates: start: 20061001, end: 20061007
  3. NEXIUM [Concomitant]
     Dosage: 40 MG, DAILY (1/D)
     Dates: start: 20061002
  4. NICODERM [Concomitant]
     Dosage: 14 MG, DAILY (1/D)
  5. NAPROXEN [Concomitant]
     Dosage: 500 MG, 2/D
     Dates: start: 20061005
  6. NORVASC [Concomitant]
     Dosage: 5 MG, DAILY (1/D)
     Dates: start: 20061005
  7. MAGNESIUM OXIDE [Concomitant]
     Dosage: 400 MG, 3/D
     Dates: start: 20061002
  8. POTASSIUM CHLORIDE [Concomitant]
     Dosage: 20 MEQ, 3/D
     Dates: start: 20061002

REACTIONS (2)
  - BLOOD PRESSURE INCREASED [None]
  - HYPONATRAEMIA [None]
